FAERS Safety Report 6566287-4 (Version None)
Quarter: 2010Q1

REPORT INFORMATION
  Report Type: 
  Country: None (occurrence: None)
  Receive Date: 20100202
  Receipt Date: 20100126
  Transmission Date: 20100710
  Serious: Yes (Other)
  Sender: FDA-Public Use
  Company Number: CA-PFIZER INC-2009299278

PATIENT
  Age: 51 Year
  Sex: Female

DRUGS (16)
  1. CHAMPIX [Suspect]
     Indication: SMOKING CESSATION THERAPY
     Dosage: UNK
     Dates: start: 20090901
  2. REMERON [Concomitant]
     Dosage: 30 MG, UNK
  3. TOPAMAX [Concomitant]
     Dosage: 125 MG, UNK
  4. COTAZYM [Concomitant]
     Dosage: UNK
  5. PREVACID [Concomitant]
     Dosage: 15 MG, UNK
  6. VITAMIN D [Concomitant]
     Dosage: 50000 UNK, UNK
  7. IRON [Concomitant]
     Dosage: 300 MG, UNK
  8. VITAMIN A [Concomitant]
  9. RIVOTRIL [Concomitant]
     Dosage: 0.5 MG, UNK
  10. AMERGE [Concomitant]
     Dosage: 2.5 MG, UNK
  11. ACETAMINOPHEN [Concomitant]
     Dosage: 500 MG, UNK
  12. ADVAIR DISKUS 100/50 [Concomitant]
     Dosage: 250 UG, UNK
  13. APO-CAL [Concomitant]
     Dosage: 500 MG, UNK
  14. ESTRADIOL [Concomitant]
     Dosage: 50 UG, UNK
  15. CALCIUM FOLINATE [Concomitant]
     Dosage: UNK
  16. VITAMIN B COMPLEX CAP [Concomitant]
     Dosage: UNK

REACTIONS (1)
  - BIPOLAR DISORDER [None]
